FAERS Safety Report 7821842 (Version 12)
Quarter: 2022Q2

REPORT INFORMATION
  Report Type: Spontaneous
  Country: GB (occurrence: GB)
  Receive Date: 20110222
  Receipt Date: 20220513
  Transmission Date: 20220721
  Serious: Yes (Hospitalization, Other)
  Sender: FDA-Public Use
  Company Number: PHHY2011GB10503

PATIENT
  Age: 21 Year
  Sex: Female

DRUGS (43)
  1. TRAMADOL HYDROCHLORIDE [Suspect]
     Active Substance: TRAMADOL HYDROCHLORIDE
     Indication: Abdominal pain
     Dosage: 150 MILLIGRAM, QD
     Route: 048
     Dates: start: 200904, end: 200909
  2. TRAMADOL HYDROCHLORIDE [Suspect]
     Active Substance: TRAMADOL HYDROCHLORIDE
     Dosage: 450 MILLIGRAM, MONTHLY
     Route: 048
     Dates: start: 200904, end: 200909
  3. TRAMADOL HYDROCHLORIDE [Suspect]
     Active Substance: TRAMADOL HYDROCHLORIDE
     Dosage: 400 MILLIGRAM, QD
     Route: 048
     Dates: start: 200904, end: 200909
  4. TRAMADOL HYDROCHLORIDE [Suspect]
     Active Substance: TRAMADOL HYDROCHLORIDE
     Dosage: 50 MG, QD (3 SEPERATE DOSES)
     Route: 048
     Dates: start: 200909, end: 201011
  5. TRAMADOL HYDROCHLORIDE [Suspect]
     Active Substance: TRAMADOL HYDROCHLORIDE
     Dosage: 150 MILLIGRAM, QD
     Route: 048
     Dates: start: 200909, end: 201011
  6. TRAMADOL HYDROCHLORIDE [Suspect]
     Active Substance: TRAMADOL HYDROCHLORIDE
     Dosage: 400 MILLIGRAM, QD
     Route: 048
     Dates: start: 200910, end: 200911
  7. TRAMADOL HYDROCHLORIDE [Suspect]
     Active Substance: TRAMADOL HYDROCHLORIDE
     Dosage: 400 MILLIGRAM, QID
     Route: 065
     Dates: start: 200910, end: 200911
  8. TRAMADOL HYDROCHLORIDE [Suspect]
     Active Substance: TRAMADOL HYDROCHLORIDE
     Dosage: 100 MILLIGRAM, QID
     Route: 065
  9. GABAPENTIN [Suspect]
     Active Substance: GABAPENTIN
     Indication: Product used for unknown indication
     Dosage: 900 MG, QD
     Route: 048
  10. GABAPENTIN [Suspect]
     Active Substance: GABAPENTIN
     Dosage: 3600 MG, QD
     Route: 048
  11. PREGABALIN [Suspect]
     Active Substance: PREGABALIN
     Indication: Product used for unknown indication
     Dosage: 2 MG, QD
     Route: 048
  12. PREGABALIN [Suspect]
     Active Substance: PREGABALIN
     Dosage: 1600 MG, UNKNOWN
     Route: 048
  13. PREGABALIN [Suspect]
     Active Substance: PREGABALIN
     Dosage: 450 MILLIGRAM
     Route: 065
     Dates: start: 200904, end: 200909
  14. CYCLIZINE [Suspect]
     Active Substance: CYCLIZINE
     Indication: Nausea
     Dosage: 50 MG, TID (50 MG, 3/DAY, 8 DOSAGE FORM, 1X/DAY:QD)
     Route: 048
  15. CYCLIZINE [Suspect]
     Active Substance: CYCLIZINE
     Indication: Vomiting
     Dosage: 150 MG, QD
     Route: 048
  16. CYCLIZINE [Suspect]
     Active Substance: CYCLIZINE
     Dosage: 100 MILLIGRAM, TID
     Route: 048
  17. CYCLIZINE [Suspect]
     Active Substance: CYCLIZINE
     Dosage: 8 DOSAGE FORM, QD
     Route: 048
  18. CYCLIZINE [Suspect]
     Active Substance: CYCLIZINE
     Dosage: 10 MG, TID
     Route: 048
  19. CYCLIZINE [Suspect]
     Active Substance: CYCLIZINE
     Dosage: 300 MILLIGRAM, TID
     Route: 065
  20. CYCLIZINE [Suspect]
     Active Substance: CYCLIZINE
     Dosage: 50 MG, QD
     Route: 065
  21. METOCLOPRAMIDE [Suspect]
     Active Substance: METOCLOPRAMIDE
     Indication: Vomiting
     Dosage: 30 MILLIGRAM, QD
     Route: 048
     Dates: start: 200907, end: 200907
  22. METOCLOPRAMIDE [Suspect]
     Active Substance: METOCLOPRAMIDE
     Indication: Abdominal pain
     Dosage: 10 MG, 3/DAY QH8 (30 MG QD)
     Route: 065
  23. METOCLOPRAMIDE [Suspect]
     Active Substance: METOCLOPRAMIDE
     Dosage: 50 MG, QD
     Route: 048
  24. METOCLOPRAMIDE [Suspect]
     Active Substance: METOCLOPRAMIDE
     Dosage: 10 MILLIGRAM, Q8HR
     Route: 065
  25. COCODAMOL [Suspect]
     Active Substance: ACETAMINOPHEN\CODEINE PHOSPHATE
     Indication: Product used for unknown indication
     Dosage: 8 DF, QD 30MG/500MG
     Route: 048
  26. COCODAMOL [Suspect]
     Active Substance: ACETAMINOPHEN\CODEINE PHOSPHATE
     Dosage: 32 DOSAGE FORM, QD
     Route: 048
  27. COCODAMOL [Suspect]
     Active Substance: ACETAMINOPHEN\CODEINE PHOSPHATE
     Dosage: 530 MG, QD
     Route: 048
  28. PRUCALOPRIDE [Suspect]
     Active Substance: PRUCALOPRIDE
     Indication: Product used for unknown indication
     Dosage: 2 MG, QD (PRUCALOPRIDE SUCCINATE (555 (PRUCALOPRIDE))
     Route: 048
  29. BETAHISTINE [Suspect]
     Active Substance: BETAHISTINE
     Indication: Product used for unknown indication
     Dosage: 24 MG, QD ( 1X/DAY, DOSAGE FORM: UNSPECIFIED)
     Route: 048
  30. BETAHISTINE [Suspect]
     Active Substance: BETAHISTINE
     Dosage: 8 DOSAGE FORM, QD
     Route: 048
  31. AMITRIPTYLINE [Suspect]
     Active Substance: AMITRIPTYLINE
     Indication: Product used for unknown indication
     Dosage: 100 MG, QD AT NIGHT
     Route: 048
  32. DOMPERIDONE [Suspect]
     Active Substance: DOMPERIDONE
     Indication: Product used for unknown indication
     Dosage: 10 MG TID, UP TO THREE TIMES A DAY (30 MILLIGRAM, QD)
     Route: 048
  33. DOMPERIDONE [Suspect]
     Active Substance: DOMPERIDONE
     Dosage: 32 DOSAGE FORM, QD
     Route: 048
  34. DOMPERIDONE [Suspect]
     Active Substance: DOMPERIDONE
     Dosage: 30 MILLIGRAM, QD
     Route: 048
  35. LANSOPRAZOLE [Concomitant]
     Active Substance: LANSOPRAZOLE
     Indication: Dyspepsia
     Dosage: 60 MILLIGRAM, QD (30 MG BID)
     Route: 048
  36. LANSOPRAZOLE [Concomitant]
     Active Substance: LANSOPRAZOLE
     Dosage: 60 MILLIGRAM, BID
     Route: 048
  37. IBUPROFEN [Concomitant]
     Active Substance: IBUPROFEN
     Indication: Product used for unknown indication
     Dosage: 1200 MILLIGRAM, QD
     Route: 065
  38. IBUPROFEN [Concomitant]
     Active Substance: IBUPROFEN
     Dosage: 50 MILLIGRAM, Q8HR
     Route: 065
  39. IBUPROFEN [Concomitant]
     Active Substance: IBUPROFEN
     Dosage: 400 MILLIGRAM, Q8HR
     Route: 065
  40. OMEPRAZOLE [Concomitant]
     Active Substance: OMEPRAZOLE
     Indication: Dyspepsia
     Dosage: 40 MILLIGRAM, QD
     Route: 065
  41. SUMATRIPTAN [Concomitant]
     Active Substance: SUMATRIPTAN
     Indication: Migraine
     Dosage: 50 MG, QD
     Route: 065
  42. HYDROCORTISONE [Concomitant]
     Active Substance: HYDROCORTISONE
     Indication: Product used for unknown indication
     Dosage: 450 MILLIGRAM, QD
     Route: 048
     Dates: start: 200904, end: 200909
  43. HYDROCORTISONE [Concomitant]
     Active Substance: HYDROCORTISONE
     Dosage: 1600 MILLIGRAM, QD
     Route: 048
     Dates: start: 200910, end: 200911

REACTIONS (10)
  - Adrenal insufficiency [Recovered/Resolved]
  - Secondary adrenocortical insufficiency [Recovered/Resolved]
  - Vision blurred [Unknown]
  - Pituitary tumour benign [Recovering/Resolving]
  - Headache [Recovered/Resolved]
  - Vomiting [Recovered/Resolved]
  - Lethargy [Recovered/Resolved]
  - Dizziness [Recovered/Resolved]
  - Abdominal pain [Recovered/Resolved]
  - Hyperprolactinaemia [Recovered/Resolved]

NARRATIVE: CASE EVENT DATE: 20091101
